FAERS Safety Report 15926372 (Version 2)
Quarter: 2025Q3

REPORT INFORMATION
  Report Type: Spontaneous
  Country: EU (occurrence: EU)
  Receive Date: 20190206
  Receipt Date: 20250724
  Transmission Date: 20251021
  Serious: Yes (Hospitalization, Other)
  Sender: AUROBINDO
  Company Number: EU-AUROBINDO-AUR-APL-2019-005678

PATIENT
  Age: 53 Year
  Sex: Female

DRUGS (2)
  1. CLOPIDOGREL [Suspect]
     Active Substance: CLOPIDOGREL BISULFATE
     Indication: Product used for unknown indication
     Route: 065
  2. INSULIN NOS [Concomitant]
     Active Substance: INSULIN NOS
     Indication: Type 2 diabetes mellitus
     Route: 065

REACTIONS (11)
  - Paroxysmal nocturnal haemoglobinuria [Recovered/Resolved]
  - Haemolytic anaemia [Recovering/Resolving]
  - Chromaturia [Unknown]
  - Polycythaemia [Unknown]
  - Leukocytosis [Unknown]
  - Headache [Unknown]
  - Back pain [Unknown]
  - Anisocytosis [Unknown]
  - Nausea [Unknown]
  - Asthenia [Unknown]
  - Poikilocytosis [Unknown]
